FAERS Safety Report 4532630-0 (Version None)
Quarter: 2004Q4

REPORT INFORMATION
  Report Type: 
  Country: None (occurrence: None)
  Receive Date: 20041220
  Receipt Date: 20041220
  Transmission Date: 20050328
  Serious: Yes (Life-Threatening, Hospitalization)
  Sender: FDA-Public Use
  Company Number: None

PATIENT
  Age: 70 Year
  Sex: Female
  Weight: 53.978 kg

DRUGS (9)
  1. IRESSA [Suspect]
     Indication: NON-SMALL CELL LUNG CANCER
     Dosage: 250 MG QD PO
     Route: 048
     Dates: start: 20041119
  2. ALBUTEROL [Concomitant]
  3. ANTIVERT [Concomitant]
  4. ACTIVAN [Concomitant]
  5. COMBIVENT [Concomitant]
  6. ELAVIL [Concomitant]
  7. LIPITOR [Concomitant]
  8. MICRO-K [Concomitant]
  9. PRILOSEC [Concomitant]

REACTIONS (2)
  - ANAEMIA [None]
  - GASTROINTESTINAL HAEMORRHAGE [None]
